FAERS Safety Report 10031932 (Version 1)
Quarter: 2014Q1

REPORT INFORMATION
  Report Type: Other
  Country: US (occurrence: US)
  Receive Date: 20140324
  Receipt Date: 20140324
  Transmission Date: 20141002
  Serious: Yes (Other)
  Sender: FDA-Public Use
  Company Number: US-SHIRE-US201400632

PATIENT
  Age: 21 Year
  Sex: Female

DRUGS (2)
  1. VPRIV [Suspect]
     Indication: GAUCHER^S DISEASE
     Dosage: 4000 IU(10 VIALS), OTHER(BIMONTHLY)
     Route: 041
     Dates: start: 201309
  2. VPRIV [Suspect]
     Dosage: UNK, UNKNOWN
     Route: 041
     Dates: start: 20110306

REACTIONS (10)
  - Depression [Unknown]
  - White blood cell count decreased [Unknown]
  - Anxiety [Unknown]
  - Hypotension [Not Recovered/Not Resolved]
  - Neck pain [Not Recovered/Not Resolved]
  - Anaemia [Not Recovered/Not Resolved]
  - Gastritis [Recovering/Resolving]
  - Arthralgia [Not Recovered/Not Resolved]
  - Fatigue [Not Recovered/Not Resolved]
  - Dizziness [Not Recovered/Not Resolved]
